FAERS Safety Report 8861603 (Version 1)
Quarter: 2012Q4

REPORT INFORMATION
  Report Type: 
  Country: US (occurrence: US)
  Receive Date: 20121025
  Receipt Date: 20121025
  Transmission Date: 20130627
  Serious: No
  Sender: FDA-Public Use
  Company Number: US-AMGEN-USASP2012017925

PATIENT
  Sex: Female
  Weight: 86.17 kg

DRUGS (10)
  1. ENBREL [Suspect]
     Indication: PRODUCT USED FOR UNKNOWN INDICATION
     Dosage: 25 mg, 2 times/wk
     Route: 058
  2. DIOVAN [Concomitant]
     Dosage: 160 mg, UNK
  3. NORVASC [Concomitant]
     Dosage: 10 mg, UNK
  4. SALAGEN [Concomitant]
     Dosage: 7.5 mg, UNK
  5. EFFEXOR [Concomitant]
     Dosage: 100 mg, UNK
  6. TRAMADOL HCL [Concomitant]
     Dosage: 100 mg, UNK
  7. CELLCEPT                           /01275102/ [Concomitant]
     Dosage: 500 mg, UNK
  8. VICODIN [Concomitant]
     Dosage: UNK
  9. TREXIMET [Concomitant]
     Dosage: UNK
  10. PREDNISONE [Concomitant]
     Dosage: 1 mg, UNK

REACTIONS (2)
  - Sinusitis [Unknown]
  - Injection site pruritus [Unknown]
